FAERS Safety Report 9373018 (Version 2)
Quarter: 2013Q2

REPORT INFORMATION
  Report Type: Spontaneous
  Country: FR (occurrence: FR)
  Receive Date: 20130627
  Receipt Date: 20130630
  Transmission Date: 20140414
  Serious: Yes (Death, Hospitalization, Other)
  Sender: FDA-Public Use
  Company Number: FR-TEVA-415706ISR

PATIENT
  Age: 89 Year
  Sex: Female

DRUGS (2)
  1. FUROSEMIDE TEVA [Suspect]
     Dosage: 250 MILLIGRAM DAILY;
  2. FUROSEMIDE TEVA [Suspect]
     Dosage: 375 MILLIGRAM DAILY;
     Dates: start: 201304

REACTIONS (10)
  - Death [Fatal]
  - Induration [Unknown]
  - Oedema peripheral [Unknown]
  - Secretion discharge [Unknown]
  - Fatigue [Unknown]
  - Gait disturbance [Unknown]
  - Somnolence [Unknown]
  - Weight increased [Unknown]
  - Aphagia [Unknown]
  - Drug ineffective [Unknown]
